FAERS Safety Report 5435768-9 (Version None)
Quarter: 2007Q3

REPORT INFORMATION
  Report Type: 
  Country: None (occurrence: None)
  Receive Date: 20070831
  Receipt Date: 20070829
  Transmission Date: 20080115
  Serious: Yes (Hospitalization)
  Sender: FDA-Public Use
  Company Number: A0676857A

PATIENT
  Age: 42 Year
  Sex: Female

DRUGS (6)
  1. ALLI [Suspect]
     Route: 048
     Dates: start: 20070614, end: 20070814
  2. MORPHINE [Suspect]
  3. DILAUDID [Suspect]
  4. METRONIDAZOLE [Suspect]
     Route: 048
  5. LEVAQUIN [Suspect]
     Route: 048
  6. NO CONCURRENT MEDICATION [Concomitant]

REACTIONS (12)
  - ABDOMINAL PAIN UPPER [None]
  - ANXIETY [None]
  - ASTHENIA [None]
  - CONSTIPATION [None]
  - DIARRHOEA [None]
  - GASTROINTESTINAL INFECTION [None]
  - MALAISE [None]
  - NAUSEA [None]
  - PAIN [None]
  - RECTAL DISCHARGE [None]
  - STEATORRHOEA [None]
  - VOMITING [None]
